FAERS Safety Report 4519021-3 (Version None)
Quarter: 2004Q4

REPORT INFORMATION
  Report Type: 
  Country: None (occurrence: None)
  Receive Date: 20041201
  Receipt Date: 20041201
  Transmission Date: 20050328
  Serious: Yes (Other)
  Sender: FDA-Public Use
  Company Number: None

PATIENT
  Sex: Female
  Weight: 82.5547 kg

DRUGS (10)
  1. WARFARIN SODIUM [Suspect]
     Indication: ANTICOAGULANT THERAPY
     Dosage: 5MG  1 ORAL
     Route: 048
     Dates: start: 20000101, end: 20041201
  2. PREDNISONE [Concomitant]
  3. GABATIN [Concomitant]
  4. FUROSEMIDE [Concomitant]
  5. CELECOXIB [Concomitant]
  6. RAMIPRIL [Concomitant]
  7. LOVASTATIN [Concomitant]
  8. ALBUTEROL-IPRATROPIUM [Concomitant]
  9. QUININE [Concomitant]
  10. INSULIN [Concomitant]

REACTIONS (3)
  - DRUG EFFECT DECREASED [None]
  - INTERNATIONAL NORMALISED RATIO INCREASED [None]
  - PHARMACEUTICAL PRODUCT COMPLAINT [None]
